FAERS Safety Report 8683381 (Version 3)
Quarter: 2013Q1

REPORT INFORMATION
  Report Type: Spontaneous
  Country: US (occurrence: US)
  Receive Date: 20120726
  Receipt Date: 20130313
  Transmission Date: 20140127
  Serious: Yes (Hospitalization, Other)
  Sender: FDA-Public Use
  Company Number: US-009507513-2012SP013135

PATIENT
  Sex: Male

DRUGS (7)
  1. VICTRELIS [Suspect]
     Indication: HEPATITIS C
     Dosage: UNK UNK, UNKNOWN
     Route: 065
     Dates: end: 20111126
  2. VICTRELIS [Suspect]
     Dosage: UNK
     Dates: start: 20120131
  3. VICTRELIS [Suspect]
     Dosage: UNK
     Dates: start: 20120216
  4. REBETOL [Suspect]
     Indication: HEPATITIS C
     Dosage: 600 MG, QD
     Route: 065
     Dates: start: 20120109
  5. REBETOL [Suspect]
     Dosage: 600 MG, QD
     Dates: start: 20111031, end: 20111126
  6. PEGASYS [Suspect]
     Indication: HEPATITIS C
     Dosage: 180 MICROGRAM, QW
     Route: 065
     Dates: start: 20120109
  7. PEGASYS [Suspect]
     Dosage: 180 MICROGRAM, UNK
     Dates: start: 20111031, end: 20111126

REACTIONS (10)
  - Abdominal distension [Unknown]
  - Renal failure acute [Unknown]
  - Haemoglobin decreased [Unknown]
  - Pain in extremity [Unknown]
  - Back pain [Unknown]
  - Musculoskeletal pain [Unknown]
  - Platelet count decreased [Unknown]
  - Nausea [Unknown]
  - Vomiting [Unknown]
  - Headache [Unknown]
